FAERS Safety Report 8429919-1 (Version None)
Quarter: 2012Q2

REPORT INFORMATION
  Report Type: 
  Country: None (occurrence: None)
  Receive Date: 20120612
  Receipt Date: 20120604
  Transmission Date: 20120825
  Serious: Yes (Hospitalization, Other)
  Sender: FDA-Public Use
  Company Number: US-ASTRAZENECA-2012SE25023

PATIENT
  Age: 74 Year
  Sex: Female

DRUGS (12)
  1. CRESTOR [Suspect]
     Route: 048
  2. AMLODIPINE BESYLATE AND BENAZEPRIL HCL [Concomitant]
     Dosage: 10 MG-40 MG
     Route: 048
  3. FLUTICASONE FUROATE [Concomitant]
     Route: 045
  4. CYANOCOBALAMIN [Concomitant]
  5. LORATADINE [Concomitant]
     Route: 048
  6. PLAVIX [Concomitant]
     Route: 048
  7. GLYBURIDE AND METFORMIN HYDROCHLORIDE [Concomitant]
     Dosage: 2.5 MG-500 MG
     Route: 048
  8. CALMS FORTE [Concomitant]
  9. GLUCOSAMINE AND CHONDROITIN WITH MSM [Concomitant]
     Route: 048
  10. LUTEIN [Concomitant]
     Route: 048
  11. LOTREL [Concomitant]
     Dosage: 5 MG-20 MG
     Route: 048
  12. OMEGA 3 POLYUNSATURATED FATTY ACIDS [Concomitant]
     Route: 048

REACTIONS (7)
  - CEREBROVASCULAR ACCIDENT [None]
  - HYPERLIPIDAEMIA [None]
  - CATARACT [None]
  - HYPERTENSION [None]
  - DIABETES MELLITUS [None]
  - CORONARY ARTERY DISEASE [None]
  - CAROTID ARTERY STENOSIS [None]
